FAERS Safety Report 26070099 (Version 1)
Quarter: 2025Q4

REPORT INFORMATION
  Report Type: Spontaneous
  Country: KR (occurrence: KR)
  Receive Date: 20251120
  Receipt Date: 20251120
  Transmission Date: 20260118
  Serious: Yes (Hospitalization)
  Sender: EISAI
  Company Number: KR-LEQ-L-25004

PATIENT
  Age: 74 Year
  Sex: Female
  Weight: 61.5 kg

DRUGS (5)
  1. LECANEMAB [Suspect]
     Active Substance: LECANEMAB
     Indication: Dementia Alzheimer^s type
     Route: 042
     Dates: start: 20250421, end: 2025
  2. LECANEMAB [Suspect]
     Active Substance: LECANEMAB
     Dosage: SECOND THROUGH FIFTH DOSES
     Route: 042
     Dates: start: 2025, end: 2025
  3. LECANEMAB [Suspect]
     Active Substance: LECANEMAB
     Dosage: SIXTH DOSE
     Route: 042
     Dates: start: 2025, end: 2025
  4. EXELON [Concomitant]
     Active Substance: RIVASTIGMINE TARTRATE
     Indication: Product used for unknown indication
     Dosage: FREQUENCY UNKNOWN
  5. MEMANTINE [Concomitant]
     Active Substance: MEMANTINE
     Indication: Product used for unknown indication
     Dosage: FREQUENCY UNKNOWN

REACTIONS (5)
  - Delirium [Recovered/Resolved]
  - Amyloid related imaging abnormality-microhaemorrhages and haemosiderin deposits [Unknown]
  - Amyloid related imaging abnormality-oedema/effusion [Unknown]
  - Vomiting [Recovered/Resolved]
  - Headache [Recovered/Resolved]

NARRATIVE: CASE EVENT DATE: 20250421
